FAERS Safety Report 5406540-0 (Version None)
Quarter: 2007Q3

REPORT INFORMATION
  Report Type: 
  Country: None (occurrence: None)
  Receive Date: 20070806
  Receipt Date: 20070730
  Transmission Date: 20080115
  Serious: Yes (Death, Hospitalization, Other)
  Sender: FDA-Public Use
  Company Number: US-PFIZER INC-2006152263

PATIENT
  Sex: Male

DRUGS (3)
  1. CELEBREX [Suspect]
     Indication: ARTHRITIS
     Dates: start: 20010820, end: 20031101
  2. BEXTRA [Suspect]
     Indication: ARTHRITIS
     Dates: start: 20030922, end: 20031022
  3. VIOXX [Suspect]
     Route: 048
     Dates: start: 20010723, end: 20030802

REACTIONS (1)
  - MYOCARDIAL INFARCTION [None]
